FAERS Safety Report 15304200 (Version 2)
Quarter: 2018Q4

REPORT INFORMATION
  Report Type: Report from Study
  Country: US (occurrence: US)
  Receive Date: 20180821
  Receipt Date: 20181016
  Transmission Date: 20190204
  Serious: No
  Sender: FDA-Public Use
  Company Number: US-AMGEN INC.-USASL2018098536

PATIENT
  Age: 46 Year
  Sex: Female

DRUGS (3)
  1. MAGNESIUM [Suspect]
     Active Substance: MAGNESIUM
     Indication: DETOXIFICATION
     Dosage: UNK
     Route: 065
     Dates: start: 20180817, end: 20180821
  2. KETOROLAC [Concomitant]
     Active Substance: KETOROLAC\KETOROLAC TROMETHAMINE
     Indication: MIGRAINE
     Dosage: UNK
  3. AIMOVIG [Suspect]
     Active Substance: ERENUMAB-AOOE
     Indication: MIGRAINE PROPHYLAXIS
     Dosage: 140 MG, QMO
     Route: 065
     Dates: start: 20180712

REACTIONS (6)
  - Product dose omission [Unknown]
  - Injection site pain [Recovered/Resolved]
  - Hypertension [Not Recovered/Not Resolved]
  - Migraine [Unknown]
  - Constipation [Unknown]
  - Fatigue [Not Recovered/Not Resolved]

NARRATIVE: CASE EVENT DATE: 2018
